FAERS Safety Report 15882619 (Version 3)
Quarter: 2019Q3

REPORT INFORMATION
  Report Type: Spontaneous
  Country: JP (occurrence: JP)
  Receive Date: 20190129
  Receipt Date: 20190905
  Transmission Date: 20191004
  Serious: Yes (Death)
  Sender: FDA-Public Use
  Company Number: JP-ROCHE-2251072

PATIENT
  Age: 85 Year
  Sex: Male

DRUGS (11)
  1. URSODEOXYCHOLIC ACID [Concomitant]
     Active Substance: URSODIOL
  2. BELSOMRA [Concomitant]
     Active Substance: SUVOREXANT
  3. TOWATHIEM [Concomitant]
     Active Substance: ACETAMINOPHEN\CAFFEINE\PROMETHAZINE\SALICYLAMIDE
     Indication: INFLUENZA
     Route: 048
     Dates: start: 20190108
  4. OMEPRAZOLE. [Concomitant]
     Active Substance: OMEPRAZOLE
  5. DOPAMINE [Concomitant]
     Active Substance: DOPAMINE HYDROCHLORIDE
     Indication: CIRCULATORY COLLAPSE
     Route: 065
     Dates: start: 20190110, end: 20190110
  6. XOFLUZA [Suspect]
     Active Substance: BALOXAVIR MARBOXIL
     Indication: INFLUENZA
     Route: 048
     Dates: start: 20190108, end: 20190108
  7. LEVETIRACETAM. [Concomitant]
     Active Substance: LEVETIRACETAM
  8. KENKETU GLOVENIN-I [Concomitant]
     Active Substance: HUMAN IMMUNOGLOBULIN G
     Indication: INFECTION
     Route: 065
     Dates: start: 20190110, end: 20190110
  9. GABEXATE MESILATE [Concomitant]
     Active Substance: GABEXATE MESYLATE
     Indication: DISSEMINATED INTRAVASCULAR COAGULATION
     Route: 065
     Dates: start: 20190109, end: 20190110
  10. NEUTROGIN [Concomitant]
     Active Substance: LENOGRASTIM
     Indication: NEUTROPHIL COUNT DECREASED
     Route: 065
     Dates: start: 20190110, end: 20190110
  11. MEMARY [Concomitant]
     Active Substance: MEMANTINE HYDROCHLORIDE

REACTIONS (4)
  - Influenza [Fatal]
  - Blood creatine phosphokinase increased [Fatal]
  - White blood cell count decreased [Fatal]
  - Hepatic function abnormal [Fatal]

NARRATIVE: CASE EVENT DATE: 20190108
